FAERS Safety Report 4414503-7 (Version None)
Quarter: 2004Q3

REPORT INFORMATION
  Report Type: 
  Country: None (occurrence: None)
  Receive Date: 20040702
  Receipt Date: 20030703
  Transmission Date: 20050211
  Serious: Yes (Hospitalization)
  Sender: FDA-Public Use
  Company Number: 341838

PATIENT
  Age: 60 Year
  Sex: Female

DRUGS (3)
  1. KLONOPIN [Suspect]
     Indication: ILL-DEFINED DISORDER
     Dosage: 2 MG DAILY ORAL
     Route: 048
     Dates: start: 19950615
  2. MS CONTIN [Concomitant]
  3. TYLENOL WITH CODEINE (ACETAMINOPHEN/CODEINE PHOSPHATE) [Concomitant]

REACTIONS (2)
  - OEDEMA PERIPHERAL [None]
  - PAIN IN EXTREMITY [None]
